FAERS Safety Report 9121942 (Version 1)
Quarter: 2013Q1

REPORT INFORMATION
  Report Type: Spontaneous
  Country: ZA (occurrence: ZA)
  Receive Date: 20130227
  Receipt Date: 20130227
  Transmission Date: 20140127
  Serious: Yes (Other)
  Sender: FDA-Public Use
  Company Number: ZA-MILLENNIUM PHARMACEUTICALS, INC.-2013-01410

PATIENT
  Sex: 0

DRUGS (9)
  1. VELCADE [Suspect]
     Indication: WALDENSTROM^S MACROGLOBULINAEMIA
     Dosage: 2.3 MG, CYCLIC
     Route: 042
     Dates: start: 201205
  2. VELCADE [Suspect]
     Dosage: 2.3 MG, CYCLIC
     Route: 058
     Dates: start: 201210
  3. DEXAMETHASONE [Concomitant]
     Indication: WALDENSTROM^S MACROGLOBULINAEMIA
     Dosage: 40 MG, UNK
  4. NEXIUM                             /01479302/ [Concomitant]
     Indication: REFLUX GASTRITIS
     Dosage: 20 MG, UNK
     Route: 048
  5. LAMICTIN [Concomitant]
     Indication: DEPRESSION
     Dosage: 400 MG, UNK
     Route: 048
  6. LEXOTAN [Concomitant]
     Indication: INSOMNIA
     Dosage: 1.5 MG, UNK
     Route: 048
  7. ZELITREX                           /01269701/ [Concomitant]
     Indication: PROPHYLAXIS
     Dosage: 250 MG, UNK
     Route: 048
     Dates: start: 201205
  8. OMEGA                              /00694402/ [Concomitant]
     Dosage: 1000 MG, UNK
  9. ANGELIQ [Concomitant]
     Indication: MENOPAUSAL SYMPTOMS
     Route: 048

REACTIONS (3)
  - Arthritis [Not Recovered/Not Resolved]
  - Myalgia [Recovered/Resolved]
  - Off label use [Not Recovered/Not Resolved]
